FAERS Safety Report 9471032 (Version 2)
Quarter: 2013Q3

REPORT INFORMATION
  Report Type: Report from Study
  Country: JP (occurrence: JP)
  Receive Date: 20130822
  Receipt Date: 20130822
  Transmission Date: 20140515
  Serious: Yes (Death, Hospitalization)
  Sender: FDA-Public Use
  Company Number: PHHO2008JP13287

PATIENT
  Age: 66 Year
  Sex: Female
  Weight: 77 kg

DRUGS (27)
  1. ALISKIREN [Suspect]
     Indication: CARDIOVASCULAR DISORDER
     Route: 048
     Dates: start: 20080918, end: 20081019
  2. ALISKIREN [Suspect]
     Route: 048
     Dates: start: 20081020, end: 20110726
  3. ALISKIREN [Suspect]
     Route: 048
     Dates: start: 20110901
  4. CRESTOR [Concomitant]
     Indication: HYPERLIPIDAEMIA
     Dosage: 5 MG, UNK
     Route: 048
     Dates: start: 20070516
  5. CRESTOR [Concomitant]
     Dosage: 10 MG, UNK
     Route: 048
  6. BUFORMIN HYDROCHLORIDE [Concomitant]
     Indication: DIABETES MELLITUS
     Dosage: 200 MG, UNK
     Route: 048
     Dates: start: 20080618
  7. NOVORAPID [Concomitant]
     Indication: DIABETES MELLITUS
     Dosage: 80 IU, UNK
     Route: 058
     Dates: start: 20080918
  8. NOVORAPID [Concomitant]
     Dosage: 78 IU, UNK
     Route: 058
  9. NOVORAPID [Concomitant]
     Dosage: 80 IU, UNK
     Route: 058
  10. NOVORAPID [Concomitant]
     Dosage: 84 IU, UNK
     Route: 058
  11. NOVORAPID [Concomitant]
     Dosage: 46 IU, UNK
     Route: 058
     Dates: start: 20090529
  12. NOVORAPID [Concomitant]
     Dosage: 42 IU, UNK
     Route: 058
  13. NOVORAPID [Concomitant]
     Dosage: 44 IU, DAILY
     Route: 058
     Dates: start: 20100628
  14. NOVORAPID [Concomitant]
     Dosage: 48 IU, UNK
     Route: 058
     Dates: start: 20100831
  15. CORINAEL [Concomitant]
     Indication: HYPERTENSION
     Dosage: 80 MG, UNK
     Route: 048
     Dates: start: 20070516
  16. CORINAEL [Concomitant]
     Dosage: 8 MG, DAILY
     Route: 048
     Dates: start: 20110427
  17. DIOVAN [Concomitant]
     Indication: HYPERTENSION
     Dosage: 160 MG, UNK
     Route: 048
     Dates: start: 20080526
  18. ACTOS [Concomitant]
     Indication: DIABETES MELLITUS
     Dosage: 7.5 MG, UNK
     Route: 048
     Dates: start: 20070205
  19. ACTOS [Concomitant]
     Dosage: 15 MG, UNK
     Route: 048
  20. ALMYLAR [Concomitant]
     Indication: HYPERTENSION
     Dosage: 50 MG, UNK
     Route: 048
     Dates: start: 20070723
  21. FLUITRAN [Concomitant]
     Indication: HYPERTENSION
     Dosage: 2 MG, UNK
     Route: 048
     Dates: start: 20080728
  22. ZETIA [Concomitant]
     Dosage: 10 MG, UNK
     Dates: start: 20091109
  23. ZYLORIC [Concomitant]
     Indication: HYPERURICAEMIA
     Dosage: 200 MG, UNK
     Route: 048
     Dates: start: 20091117
  24. ZYLORIC [Concomitant]
     Dosage: 200 MG, UNK
     Route: 048
     Dates: start: 20110901
  25. LEVEMIR [Concomitant]
     Indication: DIABETES MELLITUS
     Dosage: 26 IU, UNK
     Route: 058
     Dates: start: 20091106
  26. LEVEMIR [Concomitant]
     Dosage: 16 IU, UNK
     Route: 058
     Dates: start: 20110831
  27. CARDENALIN [Concomitant]
     Indication: HYPERTENSION
     Dosage: 8 MG, UNK
     Route: 048
     Dates: start: 20110328

REACTIONS (12)
  - Cataract [Recovered/Resolved]
  - Cardiac failure [Fatal]
  - Diabetes mellitus [Recovering/Resolving]
  - Weight decreased [Recovered/Resolved]
  - Glycosylated haemoglobin increased [Recovered/Resolved]
  - Hypertension [Recovering/Resolving]
  - Pyelonephritis [Recovered/Resolved]
  - Vomiting [Recovered/Resolved]
  - Upper respiratory tract inflammation [Recovered/Resolved]
  - Diabetic retinopathy [Not Recovered/Not Resolved]
  - Thyroid neoplasm [Not Recovered/Not Resolved]
  - Vascular calcification [Not Recovered/Not Resolved]
